FAERS Safety Report 21599685 (Version 1)
Quarter: 2022Q4

REPORT INFORMATION
  Report Type: Spontaneous
  Country: US (occurrence: None)
  Receive Date: 20221115
  Receipt Date: 20221115
  Transmission Date: 20230112
  Serious: Yes (Other)
  Sender: FDA-Public Use
  Company Number: None

PATIENT
  Sex: Female

DRUGS (8)
  1. ENBREL [Suspect]
     Active Substance: ETANERCEPT
     Indication: Rheumatoid arthritis
     Dosage: 50 MG/ML SUBCUTANEOUS??INJECT 1 ML (50 MG TOTAL) UNDER THE SKIN EVERY 7 (SEVEN) DAYS.?
     Route: 058
     Dates: start: 20211224
  2. AMLODIPINE TAB [Concomitant]
  3. ASPIRIN CHLD CHW [Concomitant]
  4. ATORVASTATIN [Concomitant]
     Active Substance: ATORVASTATIN
  5. CELECOXIB CAP [Concomitant]
  6. ESCITALOPRAM TAB [Concomitant]
  7. LEFLUNOMIDE [Concomitant]
     Active Substance: LEFLUNOMIDE
  8. PANTOPRAZOLE TAB [Concomitant]

REACTIONS (2)
  - Hip surgery [None]
  - Therapy interrupted [None]
